FAERS Safety Report 6739816-5 (Version None)
Quarter: 2010Q2

REPORT INFORMATION
  Report Type: 
  Country: None (occurrence: None)
  Receive Date: 20100525
  Receipt Date: 20100520
  Transmission Date: 20101027
  Serious: Yes (Death, Hospitalization, Other)
  Sender: FDA-Public Use
  Company Number: US-BRISTOL-MYERS SQUIBB COMPANY-15017981

PATIENT
  Age: 72 Year
  Sex: Male
  Weight: 88 kg

DRUGS (14)
  1. CISPLATIN [Suspect]
     Indication: COLON CANCER
     Dates: start: 20100222
  2. ACETYLSALICYLIC ACID [Concomitant]
     Dates: start: 20090701
  3. OMEPRAZOLE [Concomitant]
     Dates: start: 19900101
  4. PROCHLORPERAZINE [Concomitant]
     Dates: start: 20080601
  5. SYNTHROID [Concomitant]
     Dates: start: 20090902
  6. TYLENOL [Concomitant]
     Dates: start: 20090522
  7. VITAMIN B-12 [Concomitant]
     Dates: start: 20080101
  8. ZANTAC [Concomitant]
     Dates: start: 19900101
  9. BENADRYL [Concomitant]
     Dates: start: 20070101
  10. VICODIN [Concomitant]
     Dates: start: 20100218
  11. TUSSIN DM [Concomitant]
     Dates: start: 20100207
  12. METOPROLOL [Concomitant]
     Dates: start: 20100222
  13. CALCIUM CITRATE [Concomitant]
     Dates: start: 20050101
  14. MAGNESIUM [Concomitant]
     Dates: start: 20080601

REACTIONS (11)
  - ANAEMIA [None]
  - ASTHENIA [None]
  - DEHYDRATION [None]
  - DIARRHOEA [None]
  - HYPERBILIRUBINAEMIA [None]
  - HYPOALBUMINAEMIA [None]
  - HYPOMAGNESAEMIA [None]
  - HYPOPHOSPHATAEMIA [None]
  - NEUTROPENIA [None]
  - SMALL INTESTINAL OBSTRUCTION [None]
  - THROMBOCYTOPENIA [None]
